FAERS Safety Report 4308618-1 (Version None)
Quarter: 2004Q1

REPORT INFORMATION
  Report Type: 
  Country: None (occurrence: None)
  Receive Date: 20040227
  Receipt Date: 20040212
  Transmission Date: 20041129
  Serious: No
  Sender: FDA-Public Use
  Company Number: 2004IM000333

PATIENT
  Age: 54 Year
  Sex: Female
  Weight: 73.4827 kg

DRUGS (12)
  1. ACTIMMUNE [Suspect]
     Indication: OVARIAN CANCER
     Dosage: 100 UG; TIW; SUBCUTANEOUS
     Route: 058
     Dates: start: 20030731, end: 20030908
  2. CARBOPLATIN [Suspect]
     Indication: OVARIAN CANCER
     Dosage: 450 MG; Q3W; INTRAVENOUS
     Route: 042
     Dates: start: 20030731, end: 20030821
  3. PACLITAXEL [Suspect]
     Indication: OVARIAN CANCER
     Dosage: 350 MG; Q3W; INTRAVENOUS
     Route: 042
     Dates: start: 20030731, end: 20030821
  4. PROZAC [Concomitant]
  5. COMPAZINE [Concomitant]
  6. ATIVAN [Concomitant]
  7. ANZEMET [Concomitant]
  8. ZOFRAN [Concomitant]
  9. SODIUM CHLORIDE 0.9% [Concomitant]
  10. TAGAMET [Concomitant]
  11. DECADRON [Concomitant]
  12. TYLENOL (CAPLET) [Concomitant]

REACTIONS (2)
  - MALNUTRITION [None]
  - NEUROPATHY PERIPHERAL [None]
